FAERS Safety Report 20483747 (Version 4)
Quarter: 2023Q1

REPORT INFORMATION
  Report Type: Spontaneous
  Country: US (occurrence: US)
  Receive Date: 20220217
  Receipt Date: 20230207
  Transmission Date: 20230418
  Serious: Yes (Other)
  Sender: FDA-Public Use
  Company Number: US-NOVARTISTESTPH-NVSC2022US034006

PATIENT
  Sex: Female
  Weight: 56.689 kg

DRUGS (3)
  1. VIVELLE-DOT [Suspect]
     Active Substance: ESTRADIOL
     Indication: Product used for unknown indication
     Dosage: UNK
     Route: 065
  2. ESTRADIOL [Suspect]
     Active Substance: ESTRADIOL
     Indication: Osteoporosis
     Dosage: 0.05 MG
     Route: 062
  3. ESTRADIOL [Suspect]
     Active Substance: ESTRADIOL
     Indication: Menopause

REACTIONS (4)
  - Lyme disease [Not Recovered/Not Resolved]
  - Pernicious anaemia [Not Recovered/Not Resolved]
  - Migraine [Recovered/Resolved]
  - Skin irritation [Unknown]
